FAERS Safety Report 8777295 (Version 2)
Quarter: 2012Q4

REPORT INFORMATION
  Report Type: 
  Country: US (occurrence: US)
  Receive Date: 20120911
  Receipt Date: 20120917
  Transmission Date: 20130627
  Serious: Yes (Hospitalization)
  Sender: FDA-Public Use
  Company Number: US-BAXTER-2012BAX016472

PATIENT
  Sex: Female

DRUGS (1)
  1. DIANEAL LOW CALCIUM (ULTRABAG) [Suspect]
     Indication: CONTINUOUS AMBULATORY PERITONEAL DIALYSIS
     Dosage: 2L TOTAL FILL VOLUME
     Route: 033

REACTIONS (1)
  - Peritoneal dialysis complication [Recovering/Resolving]
